FAERS Safety Report 25160062 (Version 1)
Quarter: 2025Q2

REPORT INFORMATION
  Report Type: Report from Study
  Country: BR (occurrence: BR)
  Receive Date: 20250404
  Receipt Date: 20250404
  Transmission Date: 20250716
  Serious: Yes (Hospitalization)
  Sender: BIOGEN
  Company Number: BR-BIOGEN-2025BI01306186

PATIENT
  Age: 5 Year
  Sex: Male
  Weight: 15.5 kg

DRUGS (3)
  1. SPINRAZA [Suspect]
     Active Substance: NUSINERSEN
     Indication: Spinal muscular atrophy
     Route: 050
     Dates: start: 20201015
  2. VITAMIN D [Concomitant]
     Active Substance: VITAMIN D NOS
     Indication: Product used for unknown indication
     Route: 050
  3. Zirvit Kids [Concomitant]
     Indication: Product used for unknown indication
     Route: 050

REACTIONS (2)
  - Viral infection [Recovered/Resolved]
  - Clostridial infection [Not Recovered/Not Resolved]

NARRATIVE: CASE EVENT DATE: 20250301
